FAERS Safety Report 8013902-4 (Version None)
Quarter: 2011Q4

REPORT INFORMATION
  Report Type: 
  Country: None (occurrence: None)
  Receive Date: 20111229
  Receipt Date: 20111221
  Transmission Date: 20120403
  Serious: Yes (Death, Other)
  Sender: FDA-Public Use
  Company Number: GB-ROCHE-1009701

PATIENT
  Sex: Female
  Weight: 46.444 kg

DRUGS (15)
  1. RAMIPRIL [Concomitant]
     Dates: start: 20111025
  2. FORTICREME [Concomitant]
     Dates: start: 20111027
  3. LUCENTIS [Suspect]
     Indication: PRODUCT USED FOR UNKNOWN INDICATION
     Route: 050
  4. AMOXICILLIN [Concomitant]
     Dates: start: 20111025
  5. CALCICHEW D3 [Concomitant]
     Dates: start: 20090202
  6. DEXAMETHASONE [Concomitant]
     Dates: start: 20110217
  7. WARFARIN SODIUM [Concomitant]
     Dates: start: 20080701
  8. TOBRAMYCIN [Concomitant]
  9. FORTISIP [Concomitant]
     Dates: start: 20111027
  10. MULTI-VITAMINS [Concomitant]
     Dates: start: 20111025
  11. PROCAL [Concomitant]
     Dates: start: 20100119
  12. FUROSEMIDE [Concomitant]
     Dates: start: 20090706
  13. FERROUS FUMARATE [Concomitant]
     Dates: start: 20080702
  14. BISOPROLOL FUMARATE [Concomitant]
     Dates: start: 20111025
  15. LACRI-LUBE [Concomitant]
     Dates: start: 20110117

REACTIONS (2)
  - LOWER RESPIRATORY TRACT INFECTION [None]
  - INTERNATIONAL NORMALISED RATIO INCREASED [None]
